FAERS Safety Report 21528285 (Version 2)
Quarter: 2022Q4

REPORT INFORMATION
  Report Type: Spontaneous
  Country: CR (occurrence: PA)
  Receive Date: 20221031
  Receipt Date: 20221104
  Transmission Date: 20230112
  Serious: No
  Sender: FDA-Public Use
  Company Number: CR-PFIZER INC-202201259159

PATIENT
  Sex: Female

DRUGS (1)
  1. PAXLOVID [Suspect]
     Active Substance: NIRMATRELVIR\RITONAVIR
     Indication: COVID-19 treatment
     Dosage: TWICE A DAY FOR 5 DAYS
     Route: 048

REACTIONS (2)
  - Product dispensing issue [Unknown]
  - Inappropriate schedule of product administration [Unknown]
